FAERS Safety Report 24259766 (Version 1)
Quarter: 2024Q3

REPORT INFORMATION
  Report Type: Spontaneous
  Country: JP (occurrence: JP)
  Receive Date: 20240828
  Receipt Date: 20240828
  Transmission Date: 20241016
  Serious: Yes (Other)
  Sender: ELI LILLY AND CO
  Company Number: JP-ELI_LILLY_AND_COMPANY-JP202408014380

PATIENT

DRUGS (1)
  1. REYVOW [Suspect]
     Active Substance: LASMIDITAN
     Indication: Product used for unknown indication
     Route: 048

REACTIONS (6)
  - Cerebrovascular accident [Unknown]
  - Imaging procedure abnormal [Unknown]
  - Dizziness [Unknown]
  - Nausea [Unknown]
  - Off label use [Unknown]
  - Somnolence [Unknown]
